FAERS Safety Report 4668489-0 (Version None)
Quarter: 2005Q2

REPORT INFORMATION
  Report Type: 
  Country: None (occurrence: None)
  Receive Date: 20050523
  Receipt Date: 20050209
  Transmission Date: 20051028
  Serious: Yes (Other)
  Sender: FDA-Public Use
  Company Number: PHBS2005IT02217

PATIENT
  Age: 76 Year
  Sex: Male

DRUGS (3)
  1. MELPHALAN [Concomitant]
     Dates: start: 20010101
  2. PREDNISONE [Concomitant]
     Dates: start: 20010101
  3. ZOLEDRONATE [Suspect]
     Indication: MULTIPLE MYELOMA
     Dosage: 4 MG, QMO
     Route: 042
     Dates: start: 20010101

REACTIONS (11)
  - BONE DISORDER [None]
  - DYSPHAGIA [None]
  - ORAL PAIN [None]
  - OSTEONECROSIS [None]
  - PRIMARY SEQUESTRUM [None]
  - PURULENT DISCHARGE [None]
  - SPEECH DISORDER [None]
  - SWELLING [None]
  - TOOTH EXTRACTION [None]
  - TRISMUS [None]
  - WOUND DEBRIDEMENT [None]
